FAERS Safety Report 21867391 (Version 4)
Quarter: 2023Q2

REPORT INFORMATION
  Report Type: Spontaneous
  Country: US (occurrence: US)
  Receive Date: 20230116
  Receipt Date: 20230412
  Transmission Date: 20230721
  Serious: No
  Sender: FDA-Public Use
  Company Number: US-Blueprint Medicines Corporation-SP-US-2023-000091

PATIENT
  Sex: Female

DRUGS (2)
  1. AYVAKIT [Suspect]
     Active Substance: AVAPRITINIB
     Indication: Systemic mastocytosis
     Route: 048
     Dates: start: 20200131
  2. AYVAKIT [Suspect]
     Active Substance: AVAPRITINIB
     Route: 065
     Dates: start: 20230119

REACTIONS (6)
  - Dry eye [Not Recovered/Not Resolved]
  - Periorbital swelling [Not Recovered/Not Resolved]
  - Hair colour changes [Not Recovered/Not Resolved]
  - Nausea [Not Recovered/Not Resolved]
  - Abdominal distension [Not Recovered/Not Resolved]
  - Hypersensitivity [Not Recovered/Not Resolved]
